FAERS Safety Report 5392327-4 (Version None)
Quarter: 2007Q3

REPORT INFORMATION
  Report Type: 
  Country: None (occurrence: None)
  Receive Date: 20070720
  Receipt Date: 20070713
  Transmission Date: 20080115
  Serious: Yes (Hospitalization)
  Sender: FDA-Public Use
  Company Number: PHEH2007US08244

PATIENT
  Sex: Female

DRUGS (3)
  1. ZELNORM [Suspect]
     Indication: CONSTIPATION
     Dates: start: 20030201
  2. ATENOLOL [Concomitant]
     Dosage: 100 UNK, QD
     Route: 048
  3. TRICOR [Concomitant]
     Dosage: 145 UNK, QD
     Route: 048

REACTIONS (4)
  - CHEST PAIN [None]
  - HYPOAESTHESIA [None]
  - SPEECH DISORDER [None]
  - TRANSIENT ISCHAEMIC ATTACK [None]
